FAERS Safety Report 11446311 (Version 1)
Quarter: 2015Q3

REPORT INFORMATION
  Report Type: Spontaneous
  Country: US (occurrence: US)
  Receive Date: 20150831
  Receipt Date: 20150831
  Transmission Date: 20151125
  Serious: Yes (Other)
  Sender: FDA-Public Use
  Company Number: US-ELI_LILLY_AND_COMPANY-US200811000201

PATIENT
  Sex: Male

DRUGS (3)
  1. NEURONTIN [Concomitant]
     Active Substance: GABAPENTIN
  2. VALIUM [Concomitant]
     Active Substance: DIAZEPAM
  3. CYMBALTA [Suspect]
     Active Substance: DULOXETINE HYDROCHLORIDE
     Dosage: 180 MG, UNK
     Dates: end: 200805

REACTIONS (12)
  - Suicidal ideation [Unknown]
  - Paraesthesia [Unknown]
  - Drug withdrawal syndrome [Recovered/Resolved]
  - Insomnia [Recovered/Resolved]
  - Insomnia [Unknown]
  - Suicide attempt [Recovered/Resolved]
  - Paraesthesia [Recovered/Resolved]
  - Prescribed overdose [Recovered/Resolved]
  - Nervousness [Recovered/Resolved]
  - Agitation [Recovered/Resolved]
  - Nervousness [Unknown]
  - Agitation [Unknown]

NARRATIVE: CASE EVENT DATE: 2008
